FAERS Safety Report 9606681 (Version 1)
Quarter: 2013Q4

REPORT INFORMATION
  Report Type: Spontaneous
  Country: US (occurrence: US)
  Receive Date: 20131008
  Receipt Date: 20131008
  Transmission Date: 20140711
  Serious: No
  Sender: FDA-Public Use
  Company Number: US-AMGEN-USASP2013064904

PATIENT
  Age: 73 Year
  Sex: Female

DRUGS (4)
  1. PROLIA [Suspect]
     Indication: OSTEOPOROSIS POSTMENOPAUSAL
     Dosage: UNK
     Route: 065
  2. CALCIUM [Concomitant]
     Dosage: 1200 MG, UNK
  3. VITAMIN D                          /00107901/ [Concomitant]
     Dosage: 2000 UNITS
  4. DILANTIN                           /00017401/ [Concomitant]
     Dosage: UNK
     Dates: start: 1950

REACTIONS (3)
  - Discomfort [Recovered/Resolved]
  - Intervertebral disc degeneration [Unknown]
  - Fibromyalgia [Unknown]
